FAERS Safety Report 7542614-6 (Version None)
Quarter: 2011Q2

REPORT INFORMATION
  Report Type: 
  Country: None (occurrence: None)
  Receive Date: 20110613
  Receipt Date: 20110608
  Transmission Date: 20111010
  Serious: Yes (Hospitalization)
  Sender: FDA-Public Use
  Company Number: GB-ROCHE-781562

PATIENT
  Sex: Female
  Weight: 76 kg

DRUGS (4)
  1. BEVACIZUMAB [Suspect]
     Dosage: DATE OF MOST RECENT ADMINISTRATION: 20 JANUARY 2011
     Route: 042
     Dates: start: 20110120
  2. EPIRUBICIN [Suspect]
     Dosage: DATE OF MOST RECENT ADMINISTRATION: 20 JANUARY 2011
     Route: 042
     Dates: start: 20110120
  3. CAPECITABINE [Suspect]
     Dosage: DOSE: 1000MG MORNING AND 1500 MG EVENING, DATE OF MOST RECENT ADMINISTRATION:09 FEBRUARY 2011
     Route: 048
     Dates: start: 20110120
  4. CISPLATIN [Suspect]
     Dosage: DATE OF MOST RECENT ADMINISTRATION: 20 JANUARY 2011
     Route: 042
     Dates: start: 20110120

REACTIONS (1)
  - RENAL FAILURE [None]
